FAERS Safety Report 6240420-6 (Version None)
Quarter: 2009Q2

REPORT INFORMATION
  Report Type: 
  Country: None (occurrence: None)
  Receive Date: 20090618
  Receipt Date: 20090618
  Transmission Date: 20091009
  Serious: Yes (Hospitalization, Other)
  Sender: FDA-Public Use
  Company Number: None

PATIENT
  Age: 35 Year
  Sex: Female
  Weight: 65.7716 kg

DRUGS (2)
  1. LUPRON [Suspect]
     Indication: ENDOMETRIOSIS
     Dosage: ONE INJECTION EVERY MONTH SQ
     Route: 058
     Dates: start: 20090327, end: 20090430
  2. LUPRON [Suspect]
     Indication: ENDOMETRIOSIS
     Dosage: ONE INJECTION EVERY MONTH SQ
     Route: 058
     Dates: start: 20090430, end: 20090529

REACTIONS (10)
  - ALOPECIA [None]
  - AMNESIA [None]
  - ARTHRALGIA [None]
  - GAIT DISTURBANCE [None]
  - HOT FLUSH [None]
  - INSOMNIA [None]
  - MUSCULAR WEAKNESS [None]
  - MYALGIA [None]
  - NIGHT SWEATS [None]
  - SKIN ODOUR ABNORMAL [None]
